FAERS Safety Report 18918085 (Version 1)
Quarter: 2021Q1

REPORT INFORMATION
  Report Type: Spontaneous
  Country: PL (occurrence: PL)
  Receive Date: 20210219
  Receipt Date: 20210219
  Transmission Date: 20210420
  Serious: Yes (Other)
  Sender: FDA-Public Use
  Company Number: PL-PFIZER INC-2021157605

PATIENT
  Age: 60 Year
  Sex: Female

DRUGS (3)
  1. DEPAKINE CHRONO [Concomitant]
     Active Substance: VALPROATE SODIUM
     Indication: PARTIAL SEIZURES
  2. LEVETIRACETAM. [Suspect]
     Active Substance: LEVETIRACETAM
     Indication: PARTIAL SEIZURES
     Dosage: 1000 MG, 2X/DAY
  3. LAMILEPT [Concomitant]
     Active Substance: LAMOTRIGINE
     Indication: PARTIAL SEIZURES

REACTIONS (2)
  - Tremor [Unknown]
  - Altered state of consciousness [Unknown]
